FAERS Safety Report 7040215-X (Version None)
Quarter: 2010Q3

REPORT INFORMATION
  Report Type: 
  Country: None (occurrence: None)
  Receive Date: 20100929
  Receipt Date: 20100708
  Transmission Date: 20110219
  Serious: Yes (Other)
  Sender: FDA-Public Use
  Company Number: US-WYE-H14558710

PATIENT
  Age: 45 Year
  Sex: Female
  Weight: 145.28 kg

DRUGS (5)
  1. PRISTIQ [Suspect]
     Indication: MAJOR DEPRESSION
     Dosage: 50 MG 1X PER 1 DAY, ORAL
     Route: 048
     Dates: start: 20100301
  2. XANAX [Suspect]
     Indication: ANXIETY
     Dosage: 1 MG QID PRN
  3. LYRICA [Concomitant]
  4. ABILIFY [Concomitant]
  5. TYLENOL W/CODEINE NO. 2 (CODEINE PHOSPHATE/PARACETAMOL) [Concomitant]

REACTIONS (11)
  - ANXIETY [None]
  - BLOOD PRESSURE INCREASED [None]
  - CONDITION AGGRAVATED [None]
  - CONTUSION [None]
  - CRYING [None]
  - DEPRESSED MOOD [None]
  - HEADACHE [None]
  - INSOMNIA [None]
  - MANIA [None]
  - MUSCLE SPASMS [None]
  - RESTLESSNESS [None]
